FAERS Safety Report 16288971 (Version 2)
Quarter: 2019Q2

REPORT INFORMATION
  Report Type: Report from Study
  Country: JP (occurrence: JP)
  Receive Date: 20190509
  Receipt Date: 20190516
  Transmission Date: 20190711
  Serious: Yes (Death)
  Sender: FDA-Public Use
  Company Number: JP-ROCHE-2311891

PATIENT
  Age: 74 Year
  Sex: Male
  Weight: 56 kg

DRUGS (1)
  1. ATEZOLIZUMAB. [Suspect]
     Active Substance: ATEZOLIZUMAB
     Indication: SQUAMOUS CELL CARCINOMA OF LUNG
     Dosage: DATE OF MOST RECENT DOSE PRIOR TO AE 25/APR/2019
     Route: 041
     Dates: start: 20190405

REACTIONS (2)
  - Cardiomyopathy [Fatal]
  - Hepatitis [Fatal]

NARRATIVE: CASE EVENT DATE: 20190421
